FAERS Safety Report 7829663-5 (Version None)
Quarter: 2011Q4

REPORT INFORMATION
  Report Type: 
  Country: None (occurrence: None)
  Receive Date: 20111021
  Receipt Date: 20111011
  Transmission Date: 20120403
  Serious: Yes (Hospitalization)
  Sender: FDA-Public Use
  Company Number: US-BIOGENIDEC-2011BI039359

PATIENT
  Age: 48 Year
  Sex: Male

DRUGS (1)
  1. AVONEX [Suspect]
     Indication: MULTIPLE SCLEROSIS
     Route: 030
     Dates: start: 20110830, end: 20110927

REACTIONS (4)
  - MUSCULOSKELETAL DISORDER [None]
  - FALL [None]
  - LOSS OF CONTROL OF LEGS [None]
  - URINARY INCONTINENCE [None]
